FAERS Safety Report 4748509-5 (Version None)
Quarter: 2005Q3

REPORT INFORMATION
  Report Type: 
  Country: None (occurrence: None)
  Receive Date: 20050818
  Receipt Date: 20050818
  Transmission Date: 20060218
  Serious: Yes (Hospitalization)
  Sender: FDA-Public Use
  Company Number: None

PATIENT
  Age: 65 Year
  Sex: Female
  Weight: 97.977 kg

DRUGS (6)
  1. NIMBEX [Suspect]
     Indication: INTUBATION
     Dosage: 10MG  ONCE   INTRAVENOU
     Route: 042
     Dates: start: 20050805, end: 20050805
  2. REGLAN [Concomitant]
  3. PEPCID [Concomitant]
  4. VANCOMYCIN [Concomitant]
  5. VERSED [Concomitant]
  6. MORPHINE [Concomitant]

REACTIONS (3)
  - FLUSHING [None]
  - HYPOTENSION [None]
  - INFUSION RELATED REACTION [None]
